FAERS Safety Report 10697225 (Version 3)
Quarter: 2015Q1

REPORT INFORMATION
  Report Type: Report from Study
  Country: US (occurrence: US)
  Receive Date: 20150108
  Receipt Date: 20150127
  Transmission Date: 20150721
  Serious: Yes (Other)
  Sender: FDA-Public Use
  Company Number: US-ROCHE-1472205

PATIENT
  Age: 69 Year
  Sex: Female
  Weight: 77.18 kg

DRUGS (1)
  1. ERIVEDGE [Suspect]
     Active Substance: VISMODEGIB
     Indication: BASAL CELL CARCINOMA
     Route: 048
     Dates: start: 201407, end: 20141119

REACTIONS (11)
  - Drug resistance [Unknown]
  - Nasopharyngitis [Recovering/Resolving]
  - Pain [Not Recovered/Not Resolved]
  - Macule [Unknown]
  - Nausea [Unknown]
  - Dysgeusia [Not Recovered/Not Resolved]
  - Alopecia [Unknown]
  - Constipation [Not Recovered/Not Resolved]
  - Diarrhoea [Not Recovered/Not Resolved]
  - Muscle spasms [Not Recovered/Not Resolved]
  - Atrophic glossitis [Unknown]

NARRATIVE: CASE EVENT DATE: 201408
